FAERS Safety Report 7823807-7 (Version None)
Quarter: 2011Q4

REPORT INFORMATION
  Report Type: 
  Country: None (occurrence: None)
  Receive Date: 20111019
  Receipt Date: 20111012
  Transmission Date: 20120403
  Serious: Yes (Other)
  Sender: FDA-Public Use
  Company Number: US-ASTELLAS-2011US004991

PATIENT
  Sex: Male
  Weight: 109 kg

DRUGS (6)
  1. PROGRAF [Suspect]
     Indication: PANCREAS TRANSPLANT
  2. NORVASC [Concomitant]
     Indication: PRODUCT USED FOR UNKNOWN INDICATION
     Dosage: UNK
     Route: 065
     Dates: start: 20060830
  3. FLORINEF [Concomitant]
     Indication: PRODUCT USED FOR UNKNOWN INDICATION
     Dosage: UNK
     Route: 065
     Dates: start: 20060830
  4. NEXIUM [Concomitant]
     Indication: PRODUCT USED FOR UNKNOWN INDICATION
     Dosage: UNK
     Route: 065
     Dates: start: 20060830
  5. PROGRAF [Suspect]
     Indication: RENAL TRANSPLANT
     Dosage: 2 MG, BID
     Route: 048
     Dates: start: 20060830
  6. MYCOPHENOLATE MOFETIL (CELLCEPT) [Concomitant]
     Indication: PRODUCT USED FOR UNKNOWN INDICATION
     Dosage: UNK
     Route: 065
     Dates: start: 20060830

REACTIONS (5)
  - OFF LABEL USE [None]
  - WOUND COMPLICATION [None]
  - BONE DISORDER [None]
  - DIABETIC ULCER [None]
  - FOOT FRACTURE [None]
